FAERS Safety Report 8514476 (Version 3)
Quarter: 2013Q4

REPORT INFORMATION
  Report Type: Spontaneous
  Country: US (occurrence: US)
  Receive Date: 20120416
  Receipt Date: 20131217
  Transmission Date: 20140711
  Serious: Yes (Other)
  Sender: FDA-Public Use
  Company Number: US-BAYER-2012-034346

PATIENT
  Age: 16 Year
  Sex: Female
  Weight: 66.21 kg

DRUGS (2)
  1. MIRENA [Suspect]
     Indication: CONTRACEPTION
     Dosage: 20 MCG/24HR, CONT
     Route: 015
     Dates: start: 20120404
  2. MIRENA [Suspect]
     Indication: MENORRHAGIA

REACTIONS (5)
  - Loss of consciousness [None]
  - Dizziness [None]
  - Syncope [None]
  - Polymenorrhoea [None]
  - Menstruation delayed [None]
